FAERS Safety Report 5217703-1 (Version None)
Quarter: 2007Q1

REPORT INFORMATION
  Report Type: 
  Country: None (occurrence: None)
  Receive Date: 20061130
  Receipt Date: 20060614
  Transmission Date: 20070707
  Serious: Yes (Other)
  Sender: FDA-Public Use
  Company Number: US200601005172

PATIENT
  Age: 54 Year
  Weight: 136.1 kg

DRUGS (11)
  1. ZYPREXA [Suspect]
     Indication: SCHIZOPHRENIA
     Dosage: SEE IMAGE
     Dates: start: 19981027, end: 20020529
  2. ZYPREXA [Suspect]
     Indication: SCHIZOPHRENIA
     Dosage: SEE IMAGE
     Dates: start: 20020529
  3. LASIX [Concomitant]
  4. TRAZODONE HCL [Concomitant]
  5. BENZTROPINE MESYLATE [Concomitant]
  6. AMLODIPINE [Concomitant]
  7. BENAZEPIRL (BENAZEPRIL) [Concomitant]
  8. THIOTHIXENE [Concomitant]
  9. TOPROL-XL [Concomitant]
  10. CALAN [Concomitant]
  11. COREG [Concomitant]

REACTIONS (4)
  - DIABETES MELLITUS NON-INSULIN-DEPENDENT [None]
  - HYPERTENSION [None]
  - OBESITY [None]
  - WEIGHT INCREASED [None]
